FAERS Safety Report 24236393 (Version 2)
Quarter: 2024Q3

REPORT INFORMATION
  Report Type: Spontaneous
  Country: US (occurrence: US)
  Receive Date: 20240822
  Receipt Date: 20240827
  Transmission Date: 20241016
  Serious: No
  Sender: INFORLIFE
  Company Number: US-INFO-20240252

PATIENT
  Age: 60 Year
  Sex: Female

DRUGS (1)
  1. ZOLEDRONIC ACID [Suspect]
     Active Substance: ZOLEDRONIC ACID
     Indication: Osteoporosis
     Dosage: EXPIRY DATE: 31-OCT-2025 ; IN TOTAL
     Route: 042
     Dates: start: 20240809

REACTIONS (3)
  - Rash [Unknown]
  - Administration site pain [Unknown]
  - Off label use [Unknown]
